FAERS Safety Report 7248420-4 (Version None)
Quarter: 2011Q1

REPORT INFORMATION
  Report Type: 
  Country: None (occurrence: None)
  Receive Date: 20110127
  Receipt Date: 20110117
  Transmission Date: 20110831
  Serious: Yes (Death, Life-Threatening, Hospitalization)
  Sender: FDA-Public Use
  Company Number: FR-BAXTER-2011BH001565

PATIENT
  Age: 58 Year
  Sex: Female

DRUGS (10)
  1. NUTRINEAL [Suspect]
     Indication: PERITONEAL DIALYSIS
     Route: 033
     Dates: end: 20110101
  2. NUTRINEAL [Suspect]
     Route: 033
     Dates: end: 20110101
  3. PHYSIOSOL IN PLASTIC CONTAINER [Concomitant]
     Indication: PERITONEAL DIALYSIS
     Route: 033
  4. EXTRANEAL [Suspect]
     Route: 033
     Dates: end: 20110101
  5. EXTRANEAL [Suspect]
     Route: 033
     Dates: end: 20110101
  6. EXTRANEAL [Suspect]
     Route: 033
     Dates: end: 20110101
  7. EXTRANEAL [Suspect]
     Indication: PERITONEAL DIALYSIS
     Route: 033
     Dates: end: 20110101
  8. NUTRINEAL [Suspect]
     Route: 033
     Dates: end: 20110101
  9. NUTRINEAL [Suspect]
     Route: 033
     Dates: end: 20110101
  10. EXTRANEAL [Suspect]
     Route: 033
     Dates: end: 20110101

REACTIONS (3)
  - BACTERIAL SEPSIS [None]
  - HYPERTHERMIA [None]
  - PERITONITIS BACTERIAL [None]
